FAERS Safety Report 6924596-0 (Version None)
Quarter: 2010Q3

REPORT INFORMATION
  Report Type: 
  Country: None (occurrence: None)
  Receive Date: 20100816
  Receipt Date: 20100804
  Transmission Date: 20110219
  Serious: Yes (Hospitalization)
  Sender: FDA-Public Use
  Company Number: US-NOVOPROD-312662

PATIENT
  Sex: Male
  Weight: 104.31 kg

DRUGS (10)
  1. VICTOZA [Suspect]
     Indication: TYPE 2 DIABETES MELLITUS
     Dosage: 0.6 MG, QD
     Route: 058
     Dates: start: 20100629, end: 20100716
  2. VICTOZA [Suspect]
     Dosage: 1.2 MG, QD
     Route: 058
     Dates: start: 20100701, end: 20100701
  3. JANUVIA [Suspect]
     Indication: TYPE 2 DIABETES MELLITUS
     Dosage: UNK
     Dates: end: 20100629
  4. JANUMET [Suspect]
     Indication: TYPE 2 DIABETES MELLITUS
     Dosage: 1000 MG, BID
     Route: 048
  5. AMARYL [Concomitant]
     Indication: TYPE 2 DIABETES MELLITUS
     Dosage: UNK
     Route: 048
  6. LISINOPRIL [Concomitant]
     Indication: PRODUCT USED FOR UNKNOWN INDICATION
     Dosage: 20 MG, QD
  7. NEXIUM [Concomitant]
     Indication: PRODUCT USED FOR UNKNOWN INDICATION
     Dosage: 40 MG, QD
  8. ASPIRIN [Concomitant]
     Indication: PRODUCT USED FOR UNKNOWN INDICATION
     Dosage: UNK
  9. VITAMIN B-12 [Concomitant]
     Indication: PRODUCT USED FOR UNKNOWN INDICATION
     Dosage: ONCE MONTHLY INJECTION
  10. LORTAB [Concomitant]
     Indication: PRODUCT USED FOR UNKNOWN INDICATION
     Dosage: UNK

REACTIONS (3)
  - HOSPITALISATION [None]
  - ILEUS [None]
  - PANCREATITIS [None]
